FAERS Safety Report 24131357 (Version 1)
Quarter: 2024Q3

REPORT INFORMATION
  Report Type: Spontaneous
  Country: FR (occurrence: FR)
  Receive Date: 20240724
  Receipt Date: 20240724
  Transmission Date: 20241016
  Serious: Yes (Other)
  Sender: MYLAN
  Company Number: FR-INCYTE CORPORATION-2023IN001044

PATIENT
  Age: 83 Year

DRUGS (2)
  1. LENALIDOMIDE [Suspect]
     Active Substance: LENALIDOMIDE
     Indication: Richter^s syndrome
     Dosage: UNK
     Route: 065
  2. TAFASITAMAB [Suspect]
     Active Substance: TAFASITAMAB
     Indication: Richter^s syndrome
     Dosage: UNK
     Route: 065

REACTIONS (3)
  - Richter^s syndrome [Unknown]
  - Disease progression [Unknown]
  - Off label use [Unknown]
